FAERS Safety Report 24545047 (Version 2)
Quarter: 2024Q4

REPORT INFORMATION
  Report Type: Spontaneous
  Country: US (occurrence: US)
  Receive Date: 20241024
  Receipt Date: 20241108
  Transmission Date: 20250115
  Serious: Yes (Hospitalization, Other)
  Sender: TEVA
  Company Number: US-TEVA-VS-3255096

PATIENT
  Age: 43 Year
  Sex: Male

DRUGS (8)
  1. PREDNISONE [Suspect]
     Active Substance: PREDNISONE
     Indication: Bruton^s agammaglobulinaemia
     Route: 048
  2. IMMUNOGLOBULINS [Concomitant]
     Indication: Bruton^s agammaglobulinaemia
     Route: 042
  3. DOXYCYCLINE [Suspect]
     Active Substance: DOXYCYCLINE
     Indication: Campylobacter infection
     Route: 065
  4. ERTAPENEM [Suspect]
     Active Substance: ERTAPENEM
     Indication: Campylobacter infection
     Route: 065
  5. AMOXICILLIN\CLAVULANIC ACID [Concomitant]
     Active Substance: AMOXICILLIN\CLAVULANIC ACID
     Indication: Campylobacter infection
     Route: 065
  6. SULFAMETHOXAZOLE\TRIMETHOPRIM [Suspect]
     Active Substance: SULFAMETHOXAZOLE\TRIMETHOPRIM
     Indication: Campylobacter infection
     Dosage: COTRIMOXAZOLE
     Route: 065
  7. CEFEPIME [Concomitant]
     Active Substance: CEFEPIME HYDROCHLORIDE
     Indication: Campylobacter infection
     Route: 065
  8. VEDOLIZUMAB [Concomitant]
     Active Substance: VEDOLIZUMAB
     Indication: Bruton^s agammaglobulinaemia
     Route: 065

REACTIONS (5)
  - Campylobacter infection [Recovered/Resolved]
  - Drug resistance [Unknown]
  - Abdominal discomfort [Unknown]
  - Photosensitivity reaction [Unknown]
  - Infection [Recovered/Resolved]
